FAERS Safety Report 5878844-9 (Version None)
Quarter: 2008Q3

REPORT INFORMATION
  Report Type: 
  Country: None (occurrence: None)
  Receive Date: 20080912
  Receipt Date: 20080908
  Transmission Date: 20090109
  Serious: Yes (Hospitalization)
  Sender: FDA-Public Use
  Company Number: US-KINGPHARMUSA00001-K200801045

PATIENT

DRUGS (10)
  1. ALTACE [Suspect]
     Dosage: 2.5 MG, QD
     Route: 048
     Dates: start: 20080406, end: 20080407
  2. LASIX [Suspect]
     Dosage: 40 MG, QD
     Route: 048
     Dates: end: 20080407
  3. TAREG [Concomitant]
     Dosage: 80 MG, UNK
     Route: 048
     Dates: end: 20080405
  4. DIFFU K [Concomitant]
     Dosage: 1200 MG, UNK
     Route: 048
     Dates: end: 20080408
  5. SINTROM [Concomitant]
     Indication: PROPHYLAXIS
     Dosage: UNK, QD
     Route: 048
     Dates: end: 20080407
  6. ROCEPHIN [Concomitant]
     Dosage: 1 U, UNK
     Route: 042
     Dates: start: 20080404, end: 20080409
  7. DIGOXIN [Concomitant]
     Dosage: .5 U, UNK
     Route: 042
     Dates: start: 20080403
  8. DILTIAZEM HCL [Concomitant]
     Dates: start: 20080405
  9. HYPERIUM                           /00939801/ [Concomitant]
     Route: 048
     Dates: start: 20080406
  10. IMOVANE [Concomitant]
     Dosage: UNK, UNK
     Route: 048
     Dates: start: 20080405, end: 20080406

REACTIONS (2)
  - DRUG INTERACTION [None]
  - RENAL FAILURE ACUTE [None]
